FAERS Safety Report 9377124 (Version 1)
Quarter: 2013Q3

REPORT INFORMATION
  Report Type: Spontaneous
  Country: US (occurrence: US)
  Receive Date: 20130701
  Receipt Date: 20130701
  Transmission Date: 20140515
  Serious: Yes (Other)
  Sender: FDA-Public Use
  Company Number: US-PFIZER INC-2013194036

PATIENT
  Age: 51 Year
  Sex: Female
  Weight: 118 kg

DRUGS (9)
  1. LYRICA [Suspect]
     Indication: PAIN IN EXTREMITY
     Dosage: 75 MG, 2X/DAY
     Dates: start: 2013, end: 2013
  2. LYRICA [Suspect]
     Indication: FIBROMYALGIA
     Dosage: 100 MG, 3X/DAY
     Dates: start: 2013, end: 201306
  3. LYRICA [Suspect]
     Dosage: 100 MG, 2X/DAY
     Dates: start: 201306
  4. ESTRACE [Concomitant]
     Indication: HYSTERECTOMY
     Dosage: 1 MG, UNK
  5. VITAMIN D [Concomitant]
     Dosage: UNK, WEEKLY
  6. CLONIDINE [Concomitant]
     Indication: HYPERTENSION
     Dosage: 1 MG, 2X/DAY
  7. XANAX [Concomitant]
     Indication: ANXIETY
     Dosage: 1 MG, 2X/DAY
  8. NORCO [Concomitant]
     Indication: PAIN IN EXTREMITY
     Dosage: UNK, 4X/DAY
  9. TIZANIDINE [Concomitant]
     Indication: MUSCLE RELAXANT THERAPY
     Dosage: 8 MG, 1X/DAY AT BED TIME

REACTIONS (4)
  - Intentional drug misuse [Unknown]
  - Joint swelling [Not Recovered/Not Resolved]
  - Oedema peripheral [Not Recovered/Not Resolved]
  - Swelling face [Not Recovered/Not Resolved]
